FAERS Safety Report 11856260 (Version 3)
Quarter: 2017Q1

REPORT INFORMATION
  Report Type: Spontaneous
  Country: KR (occurrence: KR)
  Receive Date: 20151221
  Receipt Date: 20170110
  Transmission Date: 20170428
  Serious: Yes (Other)
  Sender: FDA-Public Use
  Company Number: KR-PFIZER INC-2015438969

PATIENT
  Age: 65 Year
  Sex: Male

DRUGS (1)
  1. VIAGRA [Suspect]
     Active Substance: SILDENAFIL CITRATE
     Dosage: 750 MG, UNK (15 TABLETS)
     Route: 048

REACTIONS (7)
  - Visual impairment [Recovered/Resolved]
  - Retinogram abnormal [Recovered/Resolved]
  - Visual acuity reduced [Recovered/Resolved]
  - Retinal disorder [Recovered/Resolved]
  - Overdose [Recovered/Resolved]
  - Colour blindness [Recovered/Resolved]
  - Visual field defect [Recovered/Resolved]

NARRATIVE: CASE EVENT DATE: 201409
